FAERS Safety Report 9486826 (Version 1)
Quarter: 2013Q3

REPORT INFORMATION
  Report Type: Spontaneous
  Country: US (occurrence: None)
  Receive Date: 20130827
  Receipt Date: 20130827
  Transmission Date: 20140515
  Serious: Yes (Other)
  Sender: FDA-Public Use
  Company Number: 163-20785-13081917

PATIENT
  Age: 50 Year
  Sex: Male

DRUGS (15)
  1. THALOMID [Suspect]
     Indication: WALDENSTROM^S MACROGLOBULINAEMIA
     Dosage: 200 MG, 4 IN 4 D, PO
     Route: 048
  2. THALOMID [Suspect]
     Dosage: 200 MG, 4 IN 4 D, PO
     Route: 048
  3. BORTEZOMIB [Suspect]
     Dosage: DAY 4, IV
     Route: 042
     Dates: end: 2009
  4. CARMUSTINE [Suspect]
     Indication: WALDENSTROM^S MACROGLOBULINAEMIA
     Dosage: DAY 1, IV
     Route: 042
     Dates: end: 2009
  5. CISPLATIN [Suspect]
     Indication: WALDENSTROM^S MACROGLOBULINAEMIA
     Dosage: 15 MG/M2, 4 IN 4 D, IV
     Route: 042
     Dates: end: 2009
  6. CYCLOPHOSPHAMIDE [Suspect]
     Indication: WALDENSTROM^S MACROGLOBULINAEMIA
     Dosage: 600 MG/M2, 4 IN 4 D, IV
     Route: 042
     Dates: end: 2009
  7. CYTARABINE [Suspect]
     Indication: WALDENSTROM^S MACROGLOBULINAEMIA
     Dosage: 2 IN 1 WK, IV
     Route: 042
  8. DEXAMETHASONE [Suspect]
     Indication: WALDENSTROM^S MACROGLOBULINAEMIA
     Dosage: 200 MG, 4 IN 4 D, IV
     Route: 042
     Dates: end: 2009
  9. DOXORUBICIN [Suspect]
     Indication: WALDENSTROM^S MACROGLOBULINAEMIA
     Dosage: 15 MG/M2, 4 IN 4 D, IV
     Route: 042
     Dates: end: 2009
  10. ETOPOSIDE [Suspect]
     Indication: WALDENSTROM^S MACROGLOBULINAEMIA
     Dosage: 60 MG/M2, 4 IN 4 D, IV
     Route: 042
  11. HYDROCORTISONE [Suspect]
     Indication: WALDENSTROM^S MACROGLOBULINAEMIA
     Dosage: 2 IN 1 WK, UNK
     Dates: end: 2009
  12. MELPHALAN [Suspect]
     Indication: WALDENSTROM^S MACROGLOBULINAEMIA
     Dosage: DAY 5, IV
     Route: 042
     Dates: end: 2009
  13. METHOTREXATE [Suspect]
     Indication: WALDENSTROM^S MACROGLOBULINAEMIA
     Dosage: 2 IN 1 WK, UNK
     Dates: end: 2009
  14. RITUXIMAB [Suspect]
     Indication: WALDENSTROM^S MACROGLOBULINAEMIA
     Dosage: FOR 2 DAYS, IV
     Dates: end: 2009
  15. GRANULOCYTE COLONY-STIMULATING FACTOR (GRANULOCYTE COLONY STIMULATING FACTOR) [Concomitant]

REACTIONS (6)
  - Vision blurred [None]
  - Amnesia [None]
  - Nausea [None]
  - Vomiting [None]
  - Neuropathy peripheral [None]
  - Therapeutic response unexpected [None]
